FAERS Safety Report 14771088 (Version 2)
Quarter: 2018Q2

REPORT INFORMATION
  Report Type: Spontaneous
  Country: MX (occurrence: MX)
  Receive Date: 20180417
  Receipt Date: 20180420
  Transmission Date: 20180711
  Serious: Yes (Other)
  Sender: FDA-Public Use
  Company Number: MX-009507513-1804MEX006072

PATIENT
  Age: 28 Year
  Sex: Male

DRUGS (7)
  1. DARUNAVIR [Interacting]
     Active Substance: DARUNAVIR
     Indication: HIV INFECTION
  2. RITONAVIR. [Interacting]
     Active Substance: RITONAVIR
     Indication: HIV INFECTION
  3. TENOFOVIR [Interacting]
     Active Substance: TENOFOVIR
     Indication: HIV INFECTION
  4. RALTEGRAVIR POTASSIUM [Suspect]
     Active Substance: RALTEGRAVIR POTASSIUM
     Indication: HIV INFECTION
     Route: 048
  5. METHOTREXATE. [Interacting]
     Active Substance: METHOTREXATE
     Indication: CENTRAL NERVOUS SYSTEM LYMPHOMA
  6. CYTARABINE. [Interacting]
     Active Substance: CYTARABINE
     Indication: CENTRAL NERVOUS SYSTEM LYMPHOMA
  7. RITUXIMAB. [Interacting]
     Active Substance: RITUXIMAB
     Indication: CENTRAL NERVOUS SYSTEM LYMPHOMA

REACTIONS (3)
  - Superior mesenteric artery syndrome [Unknown]
  - Lipoatrophy [Unknown]
  - Drug interaction [Unknown]
